FAERS Safety Report 5084498-4 (Version None)
Quarter: 2006Q3

REPORT INFORMATION
  Report Type: 
  Country: None (occurrence: None)
  Receive Date: 20060821
  Receipt Date: 20060807
  Transmission Date: 20061208
  Serious: Yes (Other)
  Sender: FDA-Public Use
  Company Number: US-KINGPHARMUSA00001-K200601017

PATIENT
  Age: 64 Year
  Sex: Male
  Weight: 68 kg

DRUGS (7)
  1. ALTACE [Suspect]
     Indication: HYPERTENSION
     Dosage: 5 MG, QD
     Route: 048
     Dates: start: 20010101
  2. TOPROL-XL [Concomitant]
  3. SYNTHROID [Concomitant]
  4. VYTORIN (SIMVASTATIN, EZETIMIBE) [Concomitant]
  5. ASPIRIN [Concomitant]
     Dosage: 81 MG, UNK
  6. FISH OIL [Concomitant]
  7. M.V.I. [Concomitant]
     Dosage: UNK, UNK

REACTIONS (2)
  - BLINDNESS [None]
  - VISUAL FIELD DEFECT [None]
